FAERS Safety Report 25547590 (Version 1)
Quarter: 2025Q3

REPORT INFORMATION
  Report Type: Report from Study
  Country: EU (occurrence: EU)
  Receive Date: 20250714
  Receipt Date: 20250714
  Transmission Date: 20251020
  Serious: Yes (Other)
  Sender: CADILA
  Company Number: EU-CPL-005518

PATIENT
  Age: 45 Year
  Sex: Male

DRUGS (9)
  1. CELECOXIB [Suspect]
     Active Substance: CELECOXIB
     Indication: Medulloblastoma recurrent
     Route: 048
  2. ETOPOSIDE [Suspect]
     Active Substance: ETOPOSIDE
     Indication: Medulloblastoma recurrent
  3. THALIDOMIDE [Suspect]
     Active Substance: THALIDOMIDE
     Indication: Medulloblastoma recurrent
     Route: 048
  4. CYTARABINE [Suspect]
     Active Substance: CYTARABINE
     Indication: Medulloblastoma recurrent
  5. CYCLOPHOSPHAMIDE [Suspect]
     Active Substance: CYCLOPHOSPHAMIDE
     Indication: Medulloblastoma recurrent
  6. FENOFIBRATE [Suspect]
     Active Substance: FENOFIBRATE
     Indication: Medulloblastoma recurrent
     Route: 048
  7. BEVACIZUMAB [Suspect]
     Active Substance: BEVACIZUMAB
     Indication: Medulloblastoma recurrent
     Route: 042
  8. SULFAMETHOXAZOLE\TRIMETHOPRIM [Concomitant]
     Active Substance: SULFAMETHOXAZOLE\TRIMETHOPRIM
     Indication: Opportunistic infection prophylaxis
  9. ETOPOSIDE [Suspect]
     Active Substance: ETOPOSIDE
     Indication: Medulloblastoma recurrent
     Dosage: INTRAVENTRICULAR THERAPY

REACTIONS (3)
  - Neutropenia [Unknown]
  - Lymphopenia [Unknown]
  - Abdominal pain upper [Unknown]
